FAERS Safety Report 10336579 (Version 2)
Quarter: 2014Q3

REPORT INFORMATION
  Report Type: Spontaneous
  Country: US (occurrence: US)
  Receive Date: 20140723
  Receipt Date: 20140723
  Transmission Date: 20150326
  Serious: Yes (Life-Threatening, Other)
  Sender: FDA-Public Use
  Company Number: US-BRISTOL-MYERS SQUIBB COMPANY-20386108

PATIENT
  Age: 60 Year
  Sex: Female
  Weight: 147.39 kg

DRUGS (3)
  1. COUMADIN [Suspect]
     Active Substance: WARFARIN SODIUM
     Dosage: 1DF: 5MG ON TUESDAYS,THURSDAYS,SATURDAYS AND SUNDAYS AND 7.5MG ON MONDAYS, WEDNESDAYS, AND FRIDAYS
  2. LASIX [Concomitant]
     Active Substance: FUROSEMIDE
     Indication: CARDIAC FAILURE CONGESTIVE
  3. CYMBALTA [Concomitant]
     Active Substance: DULOXETINE HYDROCHLORIDE

REACTIONS (4)
  - Haematemesis [Unknown]
  - Haemorrhage [Unknown]
  - International normalised ratio increased [Unknown]
  - Transient ischaemic attack [Unknown]
